FAERS Safety Report 9675148 (Version 2)
Quarter: 2013Q4

REPORT INFORMATION
  Report Type: Spontaneous
  Country: DE (occurrence: DE)
  Receive Date: 20131107
  Receipt Date: 20131223
  Transmission Date: 20140711
  Serious: Yes (Hospitalization)
  Sender: FDA-Public Use
  Company Number: DE-JNJFOC-20131018368

PATIENT
  Age: 44 Year
  Sex: Male

DRUGS (2)
  1. RISPERDAL CONSTA [Suspect]
     Indication: PSYCHOTIC DISORDER
     Route: 030
  2. RISPERDAL [Concomitant]
     Indication: PSYCHOTIC DISORDER
     Route: 048

REACTIONS (1)
  - Joint abscess [Unknown]
